FAERS Safety Report 14000124 (Version 1)
Quarter: 2017Q3

REPORT INFORMATION
  Report Type: Spontaneous
  Country: FR (occurrence: FR)
  Receive Date: 20170922
  Receipt Date: 20170922
  Transmission Date: 20171128
  Serious: Yes (Other)
  Sender: FDA-Public Use
  Company Number: FR-MERCK KGAA-2027335

PATIENT
  Age: 46 Year
  Sex: Female
  Weight: 85 kg

DRUGS (1)
  1. NOVOTHYROX [Suspect]
     Active Substance: LEVOTHYROXINE SODIUM
     Indication: HYPOTHYROIDISM
     Route: 048
     Dates: start: 20170701

REACTIONS (8)
  - Fatigue [Unknown]
  - Arthralgia [Unknown]
  - Irritability [Unknown]
  - Headache [Unknown]
  - Blood pressure fluctuation [Unknown]
  - Amnesia [Unknown]
  - Dyspnoea [Unknown]
  - Eye irritation [Unknown]

NARRATIVE: CASE EVENT DATE: 2017
